FAERS Safety Report 6277790-9 (Version None)
Quarter: 2009Q3

REPORT INFORMATION
  Report Type: 
  Country: None (occurrence: None)
  Receive Date: 20090722
  Receipt Date: 20090714
  Transmission Date: 20100115
  Serious: Yes (Hospitalization, Other)
  Sender: FDA-Public Use
  Company Number: US-ABBOTT-09P-163-0583107-00

PATIENT
  Sex: Male
  Weight: 86.26 kg

DRUGS (9)
  1. HUMIRA [Suspect]
     Indication: CROHN'S DISEASE
     Route: 058
     Dates: start: 20090603
  2. MERCAPTOPURINE [Concomitant]
     Indication: CROHN'S DISEASE
     Route: 048
  3. PREDNISONE TAB [Concomitant]
     Indication: CROHN'S DISEASE
     Dosage: DECREASING DOSE
     Dates: end: 20090630
  4. PROTONIX [Concomitant]
     Indication: CROHN'S DISEASE
     Route: 048
  5. METOPROLOL TARTRATE [Concomitant]
     Indication: HYPERTENSION
     Dosage: UNSURE OF STRENGTH, EVERY OTHER DAY
     Route: 048
  6. FLORASTOR PROBIOTIC [Concomitant]
     Indication: PROBIOTIC THERAPY
  7. AMLODIPINE [Concomitant]
     Indication: HYPERTENSION
     Dosage: UNSURE OF STRENGTH, DAILY
     Route: 048
  8. PENTASA [Concomitant]
     Indication: CROHN'S DISEASE
     Route: 048
  9. SLOW FE [Concomitant]
     Indication: ANAEMIA
     Route: 048

REACTIONS (5)
  - CROHN'S DISEASE [None]
  - DYSPNOEA [None]
  - OEDEMA PERIPHERAL [None]
  - SMALL INTESTINAL OBSTRUCTION [None]
  - THROMBOSIS [None]
